FAERS Safety Report 10408590 (Version 1)
Quarter: 2014Q3

REPORT INFORMATION
  Report Type: Report from Study
  Country: CA (occurrence: CA)
  Receive Date: 20140826
  Receipt Date: 20140826
  Transmission Date: 20150326
  Serious: Yes (Other)
  Sender: FDA-Public Use
  Company Number: PHHY2014CA103630

PATIENT
  Age: 57 Year
  Sex: Female

DRUGS (10)
  1. APO-BACLOFEN [Concomitant]
     Dosage: 1 DF, TID
  2. OXYIR [Concomitant]
     Active Substance: OXYCODONE HYDROCHLORIDE
     Dosage: 1 DF, QID
  3. NEURONTIN [Concomitant]
     Active Substance: GABAPENTIN
     Dosage: 1 DF, FOUR TIMES A DAY AT MEALS AND BEDTIME
  4. IMOVANE [Concomitant]
     Active Substance: ZOPICLONE
     Dosage: 1 DF, QD
  5. MAXALT [Concomitant]
     Active Substance: RIZATRIPTAN BENZOATE
     Dosage: 1 DF, PRN
  6. ELAVIL [Concomitant]
     Active Substance: AMITRIPTYLINE HYDROCHLORIDE
     Dosage: 1 DF, QHS
  7. FLOVENT HFA [Concomitant]
     Active Substance: FLUTICASONE PROPIONATE
     Dosage: 2 DF, UNK
     Route: 055
  8. VAGIFEM [Concomitant]
     Active Substance: ESTRADIOL
  9. GILENYA [Suspect]
     Active Substance: FINGOLIMOD HYDROCHLORIDE
     Indication: MULTIPLE SCLEROSIS
     Dosage: 0.5 MG, UNK
     Route: 048
     Dates: start: 20140814
  10. BUTRANS//BUPRENORPHINE [Concomitant]
     Dosage: 1 DF, QW

REACTIONS (2)
  - Dizziness [Recovered/Resolved]
  - Palpitations [Recovered/Resolved]

NARRATIVE: CASE EVENT DATE: 20140814
